FAERS Safety Report 14925891 (Version 1)
Quarter: 2018Q2

REPORT INFORMATION
  Report Type: Spontaneous
  Country: US (occurrence: US)
  Receive Date: 20180522
  Receipt Date: 20180522
  Transmission Date: 20180711
  Serious: No
  Sender: FDA-Public Use
  Company Number: US-009507513-1805USA004363

PATIENT
  Age: 69 Year
  Sex: Female

DRUGS (4)
  1. INTRON A [Suspect]
     Active Substance: INTERFERON ALFA-2B
  2. BRENTUXIMAB VEDOTIN [Suspect]
     Active Substance: BRENTUXIMAB VEDOTIN
  3. ZOLINZA [Suspect]
     Active Substance: VORINOSTAT
     Indication: MYCOSIS FUNGOIDES
  4. GEMCITABINE [Suspect]
     Active Substance: GEMCITABINE\GEMCITABINE HYDROCHLORIDE

REACTIONS (2)
  - Product use in unapproved indication [Unknown]
  - Treatment failure [Unknown]
